FAERS Safety Report 9199120 (Version 1)
Quarter: 2013Q1

REPORT INFORMATION
  Report Type: Spontaneous
  Country: US (occurrence: None)
  Receive Date: 20130325
  Receipt Date: 20130325
  Transmission Date: 20140127
  Serious: No
  Sender: FDA-Public Use
  Company Number: 2013US-004530

PATIENT
  Age: 36 Year
  Sex: Male
  Weight: 123 kg

DRUGS (7)
  1. OMONTYS (PEGINESATIDE) SOLUTION FOR INJECTION [Suspect]
     Indication: NEPHROGENIC ANAEMIA
     Route: 042
     Dates: start: 20130104, end: 20130104
  2. EPOGEN (EPOETIN ALFA) [Concomitant]
  3. FOLATE (FOLIC ACID) [Concomitant]
  4. RENAVIT (ASCORBIC ACID, BIOTIN, CALCIUM PANTOTHENATE, FOLIC ACID, NICOTINAMIDE, PYRIDOXINE HYDROCHLORIDE, RIBOFLAVIN, THIAMINE MONONITRATE) [Concomitant]
  5. VITAMIN B12 (CYANOCOBALAMIN) [Concomitant]
  6. VITAMIN D3 (COLECALCIFEROL) [Concomitant]
  7. VENOFER [Concomitant]

REACTIONS (1)
  - Haemoglobin decreased [None]
